FAERS Safety Report 7016465-5 (Version None)
Quarter: 2010Q3

REPORT INFORMATION
  Report Type: 
  Country: None (occurrence: None)
  Receive Date: 20100909
  Receipt Date: 20100810
  Transmission Date: 20110219
  Serious: Yes (Hospitalization, Other)
  Sender: FDA-Public Use
  Company Number: 2010SP043628

PATIENT
  Age: 47 Year
  Sex: Female

DRUGS (12)
  1. SAPHRIS [Suspect]
     Indication: ANXIETY
     Route: 048
     Dates: start: 20100301, end: 20100626
  2. SAPHRIS [Suspect]
     Indication: BIPOLAR DISORDER
     Route: 048
     Dates: start: 20100301, end: 20100626
  3. SAPHRIS [Suspect]
     Indication: ANXIETY
     Route: 048
     Dates: start: 20100701
  4. SAPHRIS [Suspect]
     Indication: BIPOLAR DISORDER
     Route: 048
     Dates: start: 20100701
  5. WELBUTRIN (CON.) [Concomitant]
  6. LEXAPRO (CON.) [Concomitant]
  7. GABAPENTIN (CON.) [Concomitant]
  8. INDERAL (CON.) [Concomitant]
  9. BENADRYL (CON.) [Concomitant]
  10. LEVOTHYROXINE (CON.) [Concomitant]
  11. PROTONIX (CON.) [Concomitant]
  12. NORVASC (CON.) [Concomitant]

REACTIONS (6)
  - INCORRECT ROUTE OF DRUG ADMINISTRATION [None]
  - INCREASED TENDENCY TO BRUISE [None]
  - MUSCLE TWITCHING [None]
  - OVERDOSE [None]
  - UNDERDOSE [None]
  - WRONG TECHNIQUE IN DRUG USAGE PROCESS [None]
